FAERS Safety Report 4698851-1 (Version None)
Quarter: 2005Q2

REPORT INFORMATION
  Report Type: 
  Country: None (occurrence: None)
  Receive Date: 20050623
  Receipt Date: 20050518
  Transmission Date: 20051028
  Serious: Yes (Disabling)
  Sender: FDA-Public Use
  Company Number: 990521-SK155

PATIENT
  Age: 78 Year
  Sex: Female
  Weight: 82.73 kg

DRUGS (8)
  1. CELEBREX [Suspect]
     Indication: OSTEOARTHRITIS
     Dosage: 200 MG (2 IN 1 D), ORAL
     Route: 048
     Dates: start: 19990429, end: 19990505
  2. QUINAPRIL (QUINAPRIL HYDROCHLORIDE) [Concomitant]
  3. TAMOXIFEN CITRATE [Concomitant]
  4. CALCIUM CARBONATE (CALCIUM CARBONATE) [Concomitant]
  5. SERTRALINE HCL [Concomitant]
  6. VERAPAMIL [Concomitant]
  7. NIFEDIPINE [Concomitant]
  8. ISOSORBIDE DINITRATE [Concomitant]

REACTIONS (2)
  - GASTROINTESTINAL DISORDER [None]
  - HALLUCINATION, AUDITORY [None]
